FAERS Safety Report 8535847-3 (Version None)
Quarter: 2012Q3

REPORT INFORMATION
  Report Type: 
  Country: None (occurrence: None)
  Receive Date: 20120718
  Receipt Date: 20120718
  Transmission Date: 20120928
  Serious: Yes (Other)
  Sender: FDA-Public Use
  Company Number: None

PATIENT
  Sex: Male

DRUGS (1)
  1. TEMODAR [Suspect]
     Indication: MALIGNANT MELANOMA
     Dosage: 250MG QD PO
     Route: 048
     Dates: start: 20120401

REACTIONS (6)
  - HYPOTENSION [None]
  - TACHYCARDIA [None]
  - FLUID INTAKE REDUCED [None]
  - DIARRHOEA [None]
  - NAUSEA [None]
  - VOMITING [None]
